FAERS Safety Report 5696579-2 (Version None)
Quarter: 2008Q2

REPORT INFORMATION
  Report Type: 
  Country: None (occurrence: None)
  Receive Date: 20080404
  Receipt Date: 20080404
  Transmission Date: 20081010
  Serious: Yes (Hospitalization)
  Sender: FDA-Public Use
  Company Number: None

PATIENT
  Age: 63 Year
  Sex: Male

DRUGS (2)
  1. DOXAZOSIN MESYLATE [Suspect]
     Indication: CORONARY ARTERIAL STENT INSERTION
     Dates: start: 20071212
  2. DOXAZOSIN MESYLATE [Suspect]
     Indication: HYPERTENSION
     Dates: start: 20071212

REACTIONS (1)
  - SYNCOPE [None]
